FAERS Safety Report 5206294-7 (Version None)
Quarter: 2007Q1

REPORT INFORMATION
  Report Type: 
  Country: None (occurrence: None)
  Receive Date: 20070111
  Receipt Date: 20061212
  Transmission Date: 20070707
  Serious: Yes (Hospitalization)
  Sender: FDA-Public Use
  Company Number: AU-BOEHRINGER INGELHEIM PHARMACEUTICALS, INC.-2006-BP-14151AU

PATIENT
  Sex: Male
  Weight: 66.6 kg

DRUGS (22)
  1. TIPRANAVIR / RITONAVIR CAPSULES, SOFTGELATIN [Suspect]
     Indication: HIV INFECTION
     Dosage: 1000/400 MG/MG
     Route: 048
     Dates: start: 20030414
  2. CLINDAMYCIN [Concomitant]
     Indication: ANTIBIOTIC PROPHYLAXIS
     Route: 048
     Dates: start: 20060810, end: 20060810
  3. CLINDAMYCIN [Concomitant]
     Route: 048
     Dates: start: 20060911, end: 20060911
  4. CLINDAMYCIN [Concomitant]
     Route: 048
     Dates: start: 20060920, end: 20060920
  5. CLINDAMYCIN [Concomitant]
     Route: 048
     Dates: start: 20061018, end: 20061018
  6. FAMCICLOVIR [Concomitant]
     Indication: ANTIVIRAL PROPHYLAXIS
     Route: 048
     Dates: start: 20050127
  7. FLUCONAZOLE [Concomitant]
     Indication: ANTIFUNGAL PROPHYLAXIS
     Route: 048
  8. LOSEC (OMEPRAZOLE) [Concomitant]
     Indication: GASTROOESOPHAGEAL REFLUX PROPHYLAXIS
     Route: 048
     Dates: start: 20040106
  9. OSTELIN [Concomitant]
     Indication: PAIN
     Route: 048
     Dates: start: 20040712
  10. TESTOSTERONE PATCHES [Concomitant]
     Indication: HYPOGONADISM
     Route: 061
     Dates: start: 20050228
  11. ENDEP [Concomitant]
     Indication: NEUROPATHY PERIPHERAL
     Route: 048
     Dates: start: 20031126
  12. CLAVULIN DUO FORTE (AMOXYCILLIN/CLAVULANIC ACID) [Concomitant]
     Indication: COUGH
     Dosage: 875/125 MG
     Route: 048
     Dates: start: 20060929, end: 20061005
  13. PRAVASTATIN [Concomitant]
     Indication: HYPERLIPIDAEMIA
     Route: 048
     Dates: start: 20040209
  14. MAXIDEX [Concomitant]
     Indication: EYE PAIN
     Route: 031
     Dates: start: 20041102
  15. TENOFOVIR [Concomitant]
     Indication: HIV INFECTION
     Route: 048
     Dates: start: 20020108
  16. EFAVIRENZ [Concomitant]
     Indication: HIV INFECTION
     Route: 048
     Dates: start: 20030314
  17. LAMIVUDINE [Concomitant]
     Indication: HIV INFECTION
     Route: 048
     Dates: start: 20000204
  18. ENFUVIRTIDE [Concomitant]
     Indication: HIV INFECTION
     Route: 048
     Dates: start: 20030416
  19. CLAVULIN DUO FORTE (AMOXYCILLIN/CLAVULANIC ACID) [Concomitant]
     Indication: ORCHITIS
     Dosage: 1000/250 MG
     Route: 048
     Dates: start: 20060530, end: 20060612
  20. GENTAMICIN [Concomitant]
     Indication: ORCHITIS
     Route: 042
  21. CEFAZOLIN [Concomitant]
     Indication: ORCHITIS
     Route: 042
  22. ACETAMINOPHEN [Concomitant]
     Indication: ANALGESIC EFFECT
     Route: 048

REACTIONS (1)
  - ABSCESS DRAINAGE [None]
